FAERS Safety Report 4720425-4 (Version None)
Quarter: 2005Q3

REPORT INFORMATION
  Report Type: 
  Country: None (occurrence: None)
  Receive Date: 20050719
  Receipt Date: 20050706
  Transmission Date: 20060218
  Serious: Yes (Hospitalization, Other)
  Sender: FDA-Public Use
  Company Number: 2005098789

PATIENT
  Sex: Female

DRUGS (4)
  1. TIKOSYN [Suspect]
     Indication: ATRIAL FIBRILLATION
     Dosage: 500 MCG (250 MCG, 2 IN 1 D), ORAL
     Route: 048
  2. CARDIZEM CD [Suspect]
     Indication: ILL-DEFINED DISORDER
     Dosage: 240 MG (1 IN 1 D), ORAL
     Route: 048
  3. METOPROLOL TARTRATE [Suspect]
     Indication: ILL-DEFINED DISORDER
     Dosage: 250 MG (2 IN 1 D), ORAL
     Route: 048
     Dates: start: 20050101
  4. DILTIAZEM [Concomitant]

REACTIONS (12)
  - ARTHRALGIA [None]
  - ATRIAL FIBRILLATION [None]
  - BLOOD ALBUMIN DECREASED [None]
  - BLOOD ALKALINE PHOSPHATASE INCREASED [None]
  - BRADYCARDIA [None]
  - CONDITION AGGRAVATED [None]
  - HAEMOGLOBIN DECREASED [None]
  - HEART RATE INCREASED [None]
  - HYPOTENSION [None]
  - MYALGIA [None]
  - SYSTEMIC LUPUS ERYTHEMATOSUS [None]
  - WHITE BLOOD CELL COUNT DECREASED [None]
